FAERS Safety Report 6829386-5 (Version None)
Quarter: 2010Q3

REPORT INFORMATION
  Report Type: 
  Country: None (occurrence: None)
  Receive Date: 20100709
  Receipt Date: 20070302
  Transmission Date: 20110219
  Serious: No
  Sender: FDA-Public Use
  Company Number: US-PFIZER INC-2007017033

PATIENT
  Sex: Female
  Weight: 68 kg

DRUGS (7)
  1. CHANTIX [Suspect]
     Indication: SMOKING CESSATION THERAPY
     Route: 048
     Dates: start: 20070301
  2. SYNTHROID [Concomitant]
  3. ESTROGENS [Concomitant]
  4. ALLEGRA [Concomitant]
  5. MULTI-VITAMINS [Concomitant]
  6. LOVAZA [Concomitant]
  7. ZYBAN [Concomitant]

REACTIONS (2)
  - FATIGUE [None]
  - INSOMNIA [None]
